FAERS Safety Report 15961463 (Version 1)
Quarter: 2019Q1

REPORT INFORMATION
  Report Type: Spontaneous
  Country: US (occurrence: US)
  Receive Date: 20190214
  Receipt Date: 20190214
  Transmission Date: 20190417
  Serious: No
  Sender: FDA-Public Use
  Company Number: US-JNJFOC-20190127014

PATIENT
  Sex: Male
  Weight: 104.33 kg

DRUGS (2)
  1. INVEGA [Suspect]
     Active Substance: PALIPERIDONE
     Indication: PHYSICAL ASSAULT
     Route: 048
     Dates: start: 2016
  2. RISPERIDONE. [Suspect]
     Active Substance: RISPERIDONE
     Indication: PHYSICAL ASSAULT
     Route: 048
     Dates: start: 2016

REACTIONS (3)
  - Product use in unapproved indication [Unknown]
  - Delusion [Unknown]
  - Off label use [Unknown]

NARRATIVE: CASE EVENT DATE: 2016
